FAERS Safety Report 6899231-0 (Version None)
Quarter: 2010Q3

REPORT INFORMATION
  Report Type: 
  Country: None (occurrence: None)
  Receive Date: 20100802
  Receipt Date: 20080322
  Transmission Date: 20110219
  Serious: No
  Sender: FDA-Public Use
  Company Number: US-PFIZER INC-2007088398

PATIENT
  Sex: Male

DRUGS (14)
  1. LYRICA [Suspect]
     Indication: NEUROPATHY PERIPHERAL
     Route: 048
     Dates: start: 20051220, end: 20060209
  2. LYRICA [Suspect]
     Indication: BACK PAIN
  3. PERCOCET [Concomitant]
  4. MACROGOL [Concomitant]
  5. ACTIQ [Concomitant]
  6. LIDODERM [Concomitant]
  7. RELAFEN [Concomitant]
  8. CYMBALTA [Concomitant]
  9. MULTI-VITAMINS [Concomitant]
  10. PARA-SELTZER [Concomitant]
  11. SUDAFED 12 HOUR [Concomitant]
  12. STOOL SOFTENER [Concomitant]
  13. FISH OIL [Concomitant]
  14. METHADONE HCL [Concomitant]

REACTIONS (2)
  - OEDEMA PERIPHERAL [None]
  - WEIGHT INCREASED [None]
